FAERS Safety Report 8507399-5 (Version None)
Quarter: 2012Q3

REPORT INFORMATION
  Report Type: 
  Country: None (occurrence: None)
  Receive Date: 20120712
  Receipt Date: 20120705
  Transmission Date: 20120928
  Serious: Yes (Other)
  Sender: FDA-Public Use
  Company Number: US-RB-042108-12

PATIENT
  Age: 32 Year
  Sex: Male

DRUGS (1)
  1. SUBOXONE [Suspect]
     Indication: DRUG DEPENDENCE
     Route: 060
     Dates: start: 20120628

REACTIONS (4)
  - ABNORMAL BEHAVIOUR [None]
  - EUPHORIC MOOD [None]
  - HALLUCINATION [None]
  - DRUG ABUSE [None]
